FAERS Safety Report 20165732 (Version 1)
Quarter: 2021Q4

REPORT INFORMATION
  Report Type: Report from Study
  Country: US (occurrence: US)
  Receive Date: 20211209
  Receipt Date: 20211209
  Transmission Date: 20220303
  Serious: Yes (Other)
  Sender: FDA-Public Use
  Company Number: US-HBP-2019US019929

PATIENT
  Sex: Female

DRUGS (1)
  1. VALCHLOR [Suspect]
     Active Substance: MECHLORETHAMINE
     Indication: Cutaneous T-cell lymphoma
     Dosage: THIN FILM, QD
     Route: 061
     Dates: start: 201909

REACTIONS (10)
  - Malignant neoplasm progression [Unknown]
  - Condition aggravated [Not Recovered/Not Resolved]
  - Skin discolouration [Recovering/Resolving]
  - Product container issue [Unknown]
  - Product administered at inappropriate site [Unknown]
  - Product leakage [Unknown]
  - Weight decreased [Unknown]
  - Stress [Unknown]
  - Papule [Unknown]
  - Pruritus [Not Recovered/Not Resolved]

NARRATIVE: CASE EVENT DATE: 20210101
